FAERS Safety Report 5281147-7 (Version None)
Quarter: 2007Q1

REPORT INFORMATION
  Report Type: 
  Country: None (occurrence: None)
  Receive Date: 20070323
  Receipt Date: 20070305
  Transmission Date: 20070707
  Serious: No
  Sender: FDA-Public Use
  Company Number: DEPFP-S-20070015

PATIENT
  Age: 50 Year
  Sex: Female

DRUGS (1)
  1. NAVELBINE [Suspect]
     Indication: BREAST CANCER
     Dates: start: 20070220

REACTIONS (5)
  - DIPLOPIA [None]
  - EYE MOVEMENT DISORDER [None]
  - HYPOKINESIA [None]
  - NEUTROPENIA [None]
  - RETINAL ISCHAEMIA [None]
